FAERS Safety Report 9749096 (Version 2)
Quarter: 2013Q4

REPORT INFORMATION
  Report Type: Spontaneous
  Country: US (occurrence: US)
  Receive Date: 20131212
  Receipt Date: 20131212
  Transmission Date: 20140711
  Serious: No
  Sender: FDA-Public Use
  Company Number: US-TEVA-391215USA

PATIENT
  Age: 31 Year
  Sex: Female
  Weight: 86.26 kg

DRUGS (2)
  1. PARAGARD 380A [Suspect]
     Indication: CONTRACEPTION
     Route: 015
     Dates: start: 20130204, end: 2013
  2. PROZAC [Concomitant]
     Indication: ANXIETY

REACTIONS (3)
  - Metrorrhagia [Recovering/Resolving]
  - Back pain [Recovering/Resolving]
  - Abdominal pain [Recovering/Resolving]
